FAERS Safety Report 17853808 (Version 10)
Quarter: 2020Q4

REPORT INFORMATION
  Report Type: Report from Study
  Country: None (occurrence: ES)
  Receive Date: 20200602
  Receipt Date: 20201019
  Transmission Date: 20210113
  Serious: Yes (Other)
  Sender: FDA-Public Use
  Company Number: ES-ABBVIE-20K-144-3425047-00

PATIENT
  Age: 59 Year
  Sex: Male

DRUGS (3)
  1. DUODOPA [Suspect]
     Active Substance: CARBIDOPA\LEVODOPA
  2. NEXIUM [Concomitant]
     Active Substance: ESOMEPRAZOLE MAGNESIUM
     Indication: PRODUCT USED FOR UNKNOWN INDICATION
  3. DUODOPA [Suspect]
     Active Substance: CARBIDOPA\LEVODOPA
     Indication: PARKINSON^S DISEASE
     Route: 050
     Dates: start: 20170623

REACTIONS (13)
  - Cough [Unknown]
  - Gastrointestinal disorder [Unknown]
  - Abdominal discomfort [Recovering/Resolving]
  - Device breakage [Unknown]
  - Stoma site infection [Recovering/Resolving]
  - Stoma site erythema [Not Recovered/Not Resolved]
  - Stoma site ulcer [Unknown]
  - Embedded device [Not Recovered/Not Resolved]
  - Procedural complication [Not Recovered/Not Resolved]
  - Fibrin deposition on lens postoperative [Unknown]
  - Stoma site discharge [Not Recovered/Not Resolved]
  - Secretion discharge [Not Recovered/Not Resolved]
  - Stoma site haemorrhage [Recovering/Resolving]

NARRATIVE: CASE EVENT DATE: 2020
